FAERS Safety Report 5367944-8 (Version None)
Quarter: 2007Q2

REPORT INFORMATION
  Report Type: 
  Country: None (occurrence: None)
  Receive Date: 20070622
  Receipt Date: 20070619
  Transmission Date: 20071010
  Serious: No
  Sender: FDA-Public Use
  Company Number: US-ELI_LILLY_AND_COMPANY-US200706004211

PATIENT
  Sex: Female

DRUGS (5)
  1. CYMBALTA [Suspect]
     Indication: DEPRESSION
     Dosage: 90 MG, UNKNOWN
     Route: 065
     Dates: start: 20061001, end: 20070501
  2. CLARITIN-D [Concomitant]
     Dosage: UNK, UNKNOWN
     Route: 065
  3. NORVASC [Concomitant]
     Dosage: UNK, UNKNOWN
     Route: 065
  4. TYLENOL /USA/ [Concomitant]
     Dosage: UNK, AS NEEDED
     Route: 065
  5. ALCOHOL [Concomitant]

REACTIONS (3)
  - ALANINE AMINOTRANSFERASE INCREASED [None]
  - ASPARTATE AMINOTRANSFERASE INCREASED [None]
  - BLOOD ALKALINE PHOSPHATASE INCREASED [None]
